FAERS Safety Report 10160918 (Version 1)
Quarter: 2014Q2

REPORT INFORMATION
  Report Type: Spontaneous
  Country: AU (occurrence: AU)
  Receive Date: 20140508
  Receipt Date: 20140508
  Transmission Date: 20141212
  Serious: Yes (Death)
  Sender: FDA-Public Use
  Company Number: PHHY2014AU053528

PATIENT
  Age: 8 Year
  Sex: Male

DRUGS (21)
  1. AMANTADINE [Suspect]
     Indication: VIRAL INFECTION
  2. AMANTADINE [Suspect]
     Indication: NERVOUS SYSTEM DISORDER
  3. BACLOFEN [Suspect]
     Route: 037
  4. BENZODIAZEPINE [Concomitant]
     Indication: SEDATION
  5. BENZODIAZEPINE [Concomitant]
     Indication: AUTONOMIC NERVOUS SYSTEM IMBALANCE
  6. OPIOIDS [Concomitant]
     Indication: SEDATION
  7. KETAMINE [Concomitant]
     Indication: SEDATION
  8. KETAMINE [Concomitant]
     Indication: AUTONOMIC NERVOUS SYSTEM IMBALANCE
  9. PROPOFOL [Concomitant]
     Indication: MUSCLE SPASMS
  10. MG [Concomitant]
  11. CEFOTAXIME [Concomitant]
     Indication: VIRAL INFECTION
     Route: 042
  12. VANCOMYCIN [Concomitant]
     Indication: VIRAL INFECTION
     Route: 042
  13. ACYCLOVIR [Concomitant]
     Indication: VIRAL INFECTION
  14. TETANUS IMMUNOGLOBULIN [Concomitant]
     Indication: VIRAL INFECTION
     Route: 042
  15. METHYLPREDNISOLONE [Concomitant]
     Indication: VIRAL INFECTION
     Dosage: 30 MG/KG, PER DAY
  16. METHYLPREDNISOLONE [Concomitant]
     Dosage: UNK
  17. IMMUNOGLOBULIN I.V [Concomitant]
     Indication: VIRAL INFECTION
     Route: 042
  18. VASOPRESSIN [Concomitant]
     Indication: DIABETES INSIPIDUS
  19. HYDROCORTISONE [Concomitant]
     Indication: BLOOD CORTISOL DECREASED
  20. HYDROCORTISONE [Concomitant]
     Indication: HYPOGLYCAEMIA
  21. PHENYTOIN [Concomitant]
     Indication: CONVULSION

REACTIONS (4)
  - Death [Fatal]
  - Hypopituitarism [Unknown]
  - Disease progression [Unknown]
  - Therapeutic response decreased [Unknown]
